FAERS Safety Report 19578127 (Version 1)
Quarter: 2021Q3

REPORT INFORMATION
  Report Type: Spontaneous
  Country: FR (occurrence: FR)
  Receive Date: 20210719
  Receipt Date: 20210719
  Transmission Date: 20211014
  Serious: Yes (Other)
  Sender: FDA-Public Use
  Company Number: FR-US-PROVELL PHARMACEUTICALS LLC-9251236

PATIENT
  Age: 64 Year
  Sex: Female

DRUGS (3)
  1. LEVOTHYROX [Suspect]
     Active Substance: LEVOTHYROXINE
     Dosage: RESTARTED
     Dates: start: 20210611
  2. LEVOTHYROX [Suspect]
     Active Substance: LEVOTHYROXINE
     Indication: PRODUCT USED FOR UNKNOWN INDICATION
     Dates: start: 2005
  3. LEVOTHYROX [Suspect]
     Active Substance: LEVOTHYROXINE
     Dates: end: 20210413

REACTIONS (4)
  - Brain operation [Recovered/Resolved with Sequelae]
  - Knee operation [Unknown]
  - Vertigo [Unknown]
  - Hemiplegia [Unknown]

NARRATIVE: CASE EVENT DATE: 2009
